FAERS Safety Report 15546168 (Version 1)
Quarter: 2018Q4

REPORT INFORMATION
  Report Type: Spontaneous
  Country: US (occurrence: US)
  Receive Date: 20181024
  Receipt Date: 20181024
  Transmission Date: 20190205
  Serious: No
  Sender: FDA-Public Use
  Company Number: US-TEVA-2018-US-967630

PATIENT

DRUGS (2)
  1. QNASL [Suspect]
     Active Substance: BECLOMETHASONE DIPROPIONATE
     Dosage: LEFT NOSTRIL: 2 SPRAY (MORNING AND EVENING)
     Route: 045
     Dates: end: 201802
  2. QNASL [Suspect]
     Active Substance: BECLOMETHASONE DIPROPIONATE
     Indication: RHINITIS
     Dosage: RIGHT NOSTRIL: 1 SPRAY
     Route: 065

REACTIONS (1)
  - Drug ineffective [Unknown]
